FAERS Safety Report 4810737-8 (Version None)
Quarter: 2005Q4

REPORT INFORMATION
  Report Type: 
  Country: None (occurrence: None)
  Receive Date: 20051026
  Receipt Date: 20051018
  Transmission Date: 20060501
  Serious: Yes (Other)
  Sender: FDA-Public Use
  Company Number: AU-MERCK-0510AUS00106

PATIENT
  Age: 78 Year
  Sex: Female

DRUGS (11)
  1. FOSAMAX [Suspect]
     Indication: OSTEOPOROSIS
     Route: 048
     Dates: end: 20051018
  2. FOSAMAX [Suspect]
     Route: 048
     Dates: start: 19950101
  3. LEVOTHYROXINE SODIUM [Concomitant]
     Indication: HYPOTHYROIDISM
     Route: 065
     Dates: start: 19750101
  4. HYDROCHLOROTHIAZIDE AND IRBESARTAN [Concomitant]
     Route: 065
     Dates: start: 19750101
  5. HYDROCHLOROTHIAZIDE AND IRBESARTAN [Concomitant]
     Route: 065
     Dates: start: 19750101
  6. ZOCOR [Concomitant]
     Route: 065
     Dates: start: 19900101
  7. VITAMIN A [Concomitant]
     Route: 065
     Dates: start: 20050601
  8. ASCORBIC ACID [Concomitant]
     Route: 065
     Dates: start: 20050601
  9. VITAMIN E [Concomitant]
     Route: 065
     Dates: start: 20050601
  10. FOLIC ACID [Concomitant]
     Route: 065
     Dates: start: 20050601
  11. OMEGA-3 MARINE TRIGLYCERIDES [Concomitant]
     Route: 065
     Dates: start: 20051001

REACTIONS (1)
  - BREAST CANCER [None]
